FAERS Safety Report 13495603 (Version 2)
Quarter: 2018Q1

REPORT INFORMATION
  Report Type: Spontaneous
  Country: US (occurrence: US)
  Receive Date: 20170428
  Receipt Date: 20180212
  Transmission Date: 20180508
  Serious: Yes (Hospitalization)
  Sender: FDA-Public Use
  Company Number: US-LPDUSPRD-20170479

PATIENT
  Age: 64 Year
  Sex: Female
  Weight: 84 kg

DRUGS (2)
  1. 1.5% LIDOCAINE/EPINEPHRINE [Suspect]
     Active Substance: EPINEPHRINE\LIDOCAINE
     Dosage: 3 ML
     Route: 008
  2. LIDOCAINE HCL INJECTION, USP (0626-25) [Suspect]
     Active Substance: LIDOCAINE HYDROCHLORIDE
     Dosage: 10 ML
     Route: 008

REACTIONS (6)
  - Apnoea [Unknown]
  - Loss of consciousness [Unknown]
  - Anaesthetic complication [None]
  - Pupil fixed [None]
  - Hypotension [Unknown]
  - Dyspnoea [Unknown]
